FAERS Safety Report 19182572 (Version 1)
Quarter: 2021Q2

REPORT INFORMATION
  Report Type: Spontaneous
  Country: EG (occurrence: EG)
  Receive Date: 20210426
  Receipt Date: 20210426
  Transmission Date: 20210717
  Serious: Yes (Hospitalization)
  Sender: FDA-Public Use
  Company Number: EG-B.I. PHARMACEUTICALS,INC./RIDGEFIELD-2021-BI-098450

PATIENT
  Age: 41 Year
  Sex: Male
  Weight: 115 kg

DRUGS (4)
  1. SIFROL [Suspect]
     Active Substance: PRAMIPEXOLE
     Indication: PARKINSONISM
     Dosage: SIFROL 0.7 MG AS 1/2 TABLET EVERY 12 HOURS
     Dates: start: 202001
  2. RAMIXOLE [Concomitant]
     Indication: PRODUCT USED FOR UNKNOWN INDICATION
     Dosage: MILNACIPRAN WAS ADMINISTERING AS  AVEROMILAN (AVERROES PHARMA) ALTERNATING WITH RAMIXOL (EVA PHARMA)
     Dates: start: 202001
  3. PARKINTREAT [Suspect]
     Active Substance: RASAGILINE
     Indication: PARKINSONISM
     Dates: start: 202001
  4. AVEROMILAN [Concomitant]
     Indication: PRODUCT USED FOR UNKNOWN INDICATION
     Dosage: MILNACIPRAN WAS ADMINISTERING AS  AVEROMILAN (AVERROES PHARMA) ALTERNATING WITH RAMIXOL (EVA PHARMA)
     Dates: start: 202001

REACTIONS (1)
  - Hypoglycaemia [Recovered/Resolved]

NARRATIVE: CASE EVENT DATE: 202010
